FAERS Safety Report 10154070 (Version 2)
Quarter: 2014Q2

REPORT INFORMATION
  Report Type: Spontaneous
  Country: US (occurrence: None)
  Receive Date: 20140502
  Receipt Date: 20140605
  Transmission Date: 20141212
  Serious: Yes (Hospitalization, Other)
  Sender: FDA-Public Use
  Company Number: UTC-047840

PATIENT
  Age: 73 Year
  Sex: Female
  Weight: 72.1 kg

DRUGS (4)
  1. TYVASO [Suspect]
     Indication: COR PULMONALE CHRONIC
     Route: 055
     Dates: start: 20140404
  2. COUMADIN (WARFARIN SODIUM) [Concomitant]
  3. REVATIO (SILDENAFIL CITRATE) [Concomitant]
  4. ADCIRCA (TADALAFIL) UNKNOWN [Concomitant]

REACTIONS (9)
  - Oxygen saturation decreased [None]
  - Oedema peripheral [None]
  - Localised oedema [None]
  - Cough [None]
  - Cellulitis [None]
  - Confusional state [None]
  - Blood electrolytes abnormal [None]
  - Dyspnoea [None]
  - Localised oedema [None]
